FAERS Safety Report 4316293-5 (Version None)
Quarter: 2004Q1

REPORT INFORMATION
  Report Type: 
  Country: None (occurrence: None)
  Receive Date: 20040311
  Receipt Date: 20040227
  Transmission Date: 20041129
  Serious: Yes (Hospitalization, Other)
  Sender: FDA-Public Use
  Company Number: HQWYE998313FEB04

PATIENT
  Age: 57 Year
  Sex: Male

DRUGS (10)
  1. CORDARONE [Suspect]
     Indication: ATRIAL FIBRILLATION
     Dosage: 450 MG 1 X PER 1 DAY, INTRAVENOUS
     Route: 042
     Dates: start: 20030825, end: 20030830
  2. ALDACTONE [Suspect]
     Dosage: 50 MG 1 X PER 1 DAY, ORAL
     Route: 048
     Dates: end: 20030830
  3. LASIX [Suspect]
     Dosage: 40 MG 1 X PER 1 DAY, INTRAVENOUS
     Route: 042
     Dates: start: 20030825, end: 20030830
  4. TIAPRIDAL (TIAPRIDE) [Suspect]
     Indication: DELIRIUM TREMENS
     Dosage: 300 MG 1 X PER 1 DAY, INTRAVENOUS
     Route: 042
     Dates: start: 20030825, end: 20030830
  5. POTASSIUM CHLORIDE [Concomitant]
  6. AUGMENTIN [Concomitant]
  7. OFLOXACIN [Concomitant]
  8. LOVENOX [Concomitant]
  9. NITROGLYCERIN [Concomitant]
  10. OXAZEPAM [Concomitant]

REACTIONS (5)
  - AV DISSOCIATION [None]
  - ELECTROCARDIOGRAM QT PROLONGED [None]
  - HYPOKALAEMIA [None]
  - TORSADE DE POINTES [None]
  - VENTRICULAR FIBRILLATION [None]
